FAERS Safety Report 8575722-1 (Version None)
Quarter: 2012Q3

REPORT INFORMATION
  Report Type: 
  Country: None (occurrence: None)
  Receive Date: 20120807
  Receipt Date: 20120803
  Transmission Date: 20120928
  Serious: Yes (Other)
  Sender: FDA-Public Use
  Company Number: PHEH2008US04921

PATIENT
  Sex: Male

DRUGS (23)
  1. PEPCID [Concomitant]
  2. LIDOCAINE [Concomitant]
     Dosage: UNK UKN, UNK
  3. PROMETHAZINE HYDROCHLORIDE [Concomitant]
     Dosage: 25 MG, UNK
  4. SODIUM CHLORIDE [Concomitant]
     Dosage: UNK UKN, UNK
  5. ZANTAC [Concomitant]
     Dosage: UNK UKN, PRN
  6. DIPRIVAN [Concomitant]
     Dosage: 10 MG, UNK
  7. EPHEDRINE SULFATE [Concomitant]
     Dosage: UNK UKN, UNK
  8. ATENOLOL [Concomitant]
  9. ZOMETA [Suspect]
     Dosage: 4 MG, UNK
     Route: 042
     Dates: start: 20050222
  10. PERCOCET [Concomitant]
     Dosage: 5MG/325 MG, UNK
  11. FENTANYL CITRATE [Concomitant]
     Dosage: 0.05 MG, UNK
  12. MIDAZOLAM [Concomitant]
     Dosage: 2 MG, UNK
  13. DIAZEPAM [Concomitant]
     Dosage: 10 MG, UNK
  14. CITRUCEL [Concomitant]
  15. ADVIL [Concomitant]
  16. ROBINUL [Concomitant]
     Dosage: UNK UKN, UNK
  17. LISINOPRIL [Concomitant]
  18. COLACE [Concomitant]
     Dosage: 100 MG, BID
  19. METAMUCIL-2 [Concomitant]
     Dosage: UNK UKN, BID
  20. MEPERIDINE HYDROCHLORIDE [Concomitant]
     Dosage: 50 MG, UNK
  21. HISTRELIN [Concomitant]
  22. BENICAR [Concomitant]
     Dosage: 40/25 MG, QD
  23. ZEMURON [Concomitant]
     Dosage: 10 MG, UNK

REACTIONS (43)
  - PAIN [None]
  - MITRAL VALVE INCOMPETENCE [None]
  - VENTRICULAR HYPERTROPHY [None]
  - HUNGER [None]
  - CHOLELITHIASIS [None]
  - BILE DUCT OBSTRUCTION [None]
  - HYPOVOLAEMIA [None]
  - OSTEONECROSIS OF JAW [None]
  - DIABETES MELLITUS [None]
  - CONTUSION [None]
  - FATIGUE [None]
  - THYROID NEOPLASM [None]
  - LYMPH NODE CALCIFICATION [None]
  - CEREBRAL HYPOPERFUSION [None]
  - TOOTH EXTRACTION [None]
  - TRICUSPID VALVE INCOMPETENCE [None]
  - ORTHOSTATIC HYPOTENSION [None]
  - RENAL FAILURE ACUTE [None]
  - CAROTID ARTERIOSCLEROSIS [None]
  - NAUSEA [None]
  - CORONARY ARTERY STENOSIS [None]
  - CHOLECYSTITIS [None]
  - VITAMIN D DEFICIENCY [None]
  - OSTEOPENIA [None]
  - GOITRE [None]
  - GYNAECOMASTIA [None]
  - ERUCTATION [None]
  - ORAL HERPES [None]
  - AORTIC VALVE INCOMPETENCE [None]
  - MALAISE [None]
  - URINARY INCONTINENCE [None]
  - MYALGIA [None]
  - PANCYTOPENIA [None]
  - URINARY TRACT INFECTION [None]
  - DYSLIPIDAEMIA [None]
  - ANAEMIA [None]
  - SINUS BRADYCARDIA [None]
  - DIZZINESS [None]
  - CONSTIPATION [None]
  - PRESYNCOPE [None]
  - DILATATION ATRIAL [None]
  - SINUSITIS [None]
  - PRURITUS [None]
